FAERS Safety Report 4611964-5 (Version None)
Quarter: 2005Q2

REPORT INFORMATION
  Report Type: 
  Country: None (occurrence: None)
  Receive Date: 20050308
  Receipt Date: 20041221
  Transmission Date: 20051028
  Serious: Yes (Other)
  Sender: FDA-Public Use
  Company Number: 2004UW25891

PATIENT
  Age: 79 Year
  Sex: Female
  Weight: 53.523 kg

DRUGS (4)
  1. CRESTOR [Suspect]
     Indication: HYPERCHOLESTEROLAEMIA
     Dosage: 10 MG PO
     Route: 048
  2. PROCARDIA [Concomitant]
  3. TENORMIN [Concomitant]
  4. ASPIRIN [Concomitant]

REACTIONS (5)
  - CONSTIPATION [None]
  - FREQUENT BOWEL MOVEMENTS [None]
  - HEADACHE [None]
  - MUSCLE SPASMS [None]
  - VAGINAL BURNING SENSATION [None]
